FAERS Safety Report 5063704-6 (Version None)
Quarter: 2006Q3

REPORT INFORMATION
  Report Type: 
  Country: None (occurrence: None)
  Receive Date: 20060703
  Receipt Date: 20060519
  Transmission Date: 20061208
  Serious: No
  Sender: FDA-Public Use
  Company Number: ENTC2006-0167

PATIENT
  Age: 73 Year
  Sex: Female

DRUGS (1)
  1. STALEVO 50 [Suspect]
     Indication: PARKINSON'S DISEASE
     Dosage: 250 MG, 5 IN 1 D, ORAL
     Route: 048
     Dates: start: 20060504

REACTIONS (1)
  - FEELING DRUNK [None]
